FAERS Safety Report 22151565 (Version 9)
Quarter: 2024Q3

REPORT INFORMATION
  Report Type: Report from Study
  Country: CA (occurrence: CA)
  Receive Date: 20230329
  Receipt Date: 20240701
  Transmission Date: 20241017
  Serious: Yes (Hospitalization, Other)
  Sender: OTSUKA
  Company Number: CA-OTSUKA-2022_053851

PATIENT
  Age: 70 Year
  Sex: Female

DRUGS (8)
  1. CEDAZURIDINE\DECITABINE [Suspect]
     Active Substance: CEDAZURIDINE\DECITABINE
     Indication: Myelodysplastic syndrome
     Dosage: 3 DF (35 MG DECITABINE AND 100 MG CEDAZURIDINE)
     Route: 065
     Dates: start: 20230309
  2. CEDAZURIDINE\DECITABINE [Suspect]
     Active Substance: CEDAZURIDINE\DECITABINE
     Dosage: 1 DF (35 MG DECITABINE AND 100 MG CEDAZURIDINE), QD (ON DAYS 1-5) OF EVERY 28-DAYS CYCLE
     Route: 048
     Dates: start: 20221102
  3. CEDAZURIDINE\DECITABINE [Suspect]
     Active Substance: CEDAZURIDINE\DECITABINE
     Dosage: 3 DF (35 MG DECITABINE AND 100 MG CEDAZURIDINE)
     Route: 065
     Dates: start: 20221217
  4. CEDAZURIDINE\DECITABINE [Suspect]
     Active Substance: CEDAZURIDINE\DECITABINE
     Dosage: 1 DF (35 MG DECITABINE AND 100 MG CEDAZURIDINE), QD (ON DAYS 1-4) OF 28-DAYS CYCLE
     Route: 048
  5. CEDAZURIDINE\DECITABINE [Suspect]
     Active Substance: CEDAZURIDINE\DECITABINE
     Dosage: 3 PILLS (35 MG DECITABINE AND 100 MG CEDAZURIDINE)
     Route: 065
     Dates: start: 20230413
  6. CEDAZURIDINE\DECITABINE [Suspect]
     Active Substance: CEDAZURIDINE\DECITABINE
     Dosage: 1 DF (35-100MG), QD ON DAYS 1-3 (EVERY OTHER DAY) OF EVERY 28 DAYS CYCLE
     Route: 048
  7. CEDAZURIDINE\DECITABINE [Suspect]
     Active Substance: CEDAZURIDINE\DECITABINE
     Dosage: 1 DF (35 MG DECITABINE AND 100 MG CEDAZURIDINE), QD (ON DAYS 1-3) OF 28-DAYS CYCLE
     Route: 048
  8. CEDAZURIDINE\DECITABINE [Suspect]
     Active Substance: CEDAZURIDINE\DECITABINE
     Dosage: 1 DF (35 MG DECITABINE AND 100 MG CEDAZURIDINE), QD (ON DAYS 1-3) FOR EVERY 6 WEEKS
     Route: 048

REACTIONS (22)
  - Pulmonary mass [Unknown]
  - Blast cell count increased [Unknown]
  - Skin disorder [Recovering/Resolving]
  - Feeding disorder [Unknown]
  - Malaise [Unknown]
  - Diarrhoea [Unknown]
  - Escherichia bacteraemia [Unknown]
  - Platelet count decreased [Recovering/Resolving]
  - Dry skin [Unknown]
  - Biopsy [Unknown]
  - Pruritus [Unknown]
  - Burning sensation [Unknown]
  - Eye inflammation [Recovering/Resolving]
  - Peripheral swelling [Unknown]
  - Pain [Unknown]
  - Gingival bleeding [Recovering/Resolving]
  - Red blood cell count decreased [Unknown]
  - White blood cell count decreased [Recovering/Resolving]
  - Neutrophil count decreased [Unknown]
  - Inappropriate schedule of product administration [Unknown]
  - Drug ineffective [Unknown]
  - Therapy interrupted [Unknown]

NARRATIVE: CASE EVENT DATE: 20221217
